FAERS Safety Report 25646860 (Version 1)
Quarter: 2025Q3

REPORT INFORMATION
  Report Type: Report from Study
  Country: US (occurrence: US)
  Receive Date: 20250805
  Receipt Date: 20250805
  Transmission Date: 20251021
  Serious: Yes (Hospitalization, Other)
  Sender: ABBVIE
  Company Number: US-ABBVIE-6313282

PATIENT
  Sex: Male

DRUGS (1)
  1. HUMIRA [Suspect]
     Active Substance: ADALIMUMAB
     Indication: Hidradenitis
     Route: 058
     Dates: start: 20241107

REACTIONS (5)
  - Loss of consciousness [Recovering/Resolving]
  - Hidradenitis [Recovering/Resolving]
  - Musculoskeletal pain [Recovering/Resolving]
  - Urinary retention [Recovering/Resolving]
  - Swelling [Recovering/Resolving]
